FAERS Safety Report 15283284 (Version 2)
Quarter: 2018Q3

REPORT INFORMATION
  Report Type: Spontaneous
  Country: US (occurrence: US)
  Receive Date: 20180816
  Receipt Date: 20180911
  Transmission Date: 20181010
  Serious: Yes (Death)
  Sender: FDA-Public Use
  Company Number: US-ROCHE-2170463

PATIENT
  Age: 72 Year
  Sex: Female

DRUGS (3)
  1. HERCEPTIN [Suspect]
     Active Substance: TRASTUZUMAB
     Indication: BREAST NEOPLASM
     Route: 042
     Dates: start: 20170802
  2. KADCYLA [Suspect]
     Active Substance: ADO-TRASTUZUMAB EMTANSINE
     Indication: BREAST NEOPLASM
     Route: 042
     Dates: start: 20171122, end: 20180502
  3. PERJETA [Suspect]
     Active Substance: PERTUZUMAB
     Indication: BREAST NEOPLASM
     Route: 042
     Dates: start: 20180420

REACTIONS (1)
  - Death [Fatal]

NARRATIVE: CASE EVENT DATE: 20180630
